FAERS Safety Report 7386431-9 (Version None)
Quarter: 2011Q1

REPORT INFORMATION
  Report Type: 
  Country: None (occurrence: None)
  Receive Date: 20110331
  Receipt Date: 20110325
  Transmission Date: 20110831
  Serious: Yes (Death, Hospitalization)
  Sender: FDA-Public Use
  Company Number: PHHY2010AU27489

PATIENT
  Sex: Female

DRUGS (13)
  1. SIMVASTATIN [Concomitant]
     Dosage: 80 MG, DAILY
     Route: 048
  2. MAXOLON [Concomitant]
     Dosage: 10 MG, TID PRN
     Route: 048
  3. PREDNISONE [Concomitant]
     Dosage: 25 MG, THEN TAPER
     Route: 048
  4. SERETIDE 250/25 [Concomitant]
     Dosage: 2 PUFFS BD
  5. INFLUENZA VACCINE [Concomitant]
  6. OXYCONTIN [Concomitant]
     Dosage: 30 MG, BID
     Route: 048
  7. NEXIUM [Concomitant]
     Dosage: 40 MG, DAILY
     Route: 048
  8. CLOPIDOGREL [Concomitant]
     Dosage: 75 MG, DAILY
     Route: 048
  9. CITALOPRAM HYDROBROMIDE [Concomitant]
     Dosage: 20 MG, DAILY
     Route: 048
  10. VERAPAMIL [Concomitant]
     Dosage: 40 MG , DAILY
     Route: 048
  11. ACLASTA [Suspect]
     Dosage: 5 MG/100 ML
     Route: 042
     Dates: start: 20100420
  12. SPIRIVA [Concomitant]
     Dosage: 18 MCG, DAILY
  13. ENDONE [Concomitant]
     Dosage: 5 MG, QID PRN
     Route: 048

REACTIONS (16)
  - INFLUENZA LIKE ILLNESS [None]
  - DYSPNOEA [None]
  - DYSLIPIDAEMIA [None]
  - HYPERTENSION [None]
  - PYREXIA [None]
  - TROPONIN INCREASED [None]
  - INCREASED UPPER AIRWAY SECRETION [None]
  - WHEEZING [None]
  - EMPHYSEMA [None]
  - MALAISE [None]
  - MYOCARDIAL INFARCTION [None]
  - BLOOD CREATINE PHOSPHOKINASE INCREASED [None]
  - CHRONIC OBSTRUCTIVE PULMONARY DISEASE [None]
  - RALES [None]
  - GASTROOESOPHAGEAL REFLUX DISEASE [None]
  - CEREBROVASCULAR ACCIDENT [None]
